FAERS Safety Report 7429872-3 (Version None)
Quarter: 2011Q2

REPORT INFORMATION
  Report Type: 
  Country: None (occurrence: None)
  Receive Date: 20110421
  Receipt Date: 20110414
  Transmission Date: 20111010
  Serious: Yes (Other)
  Sender: FDA-Public Use
  Company Number: US-JNJFOC-20100707880

PATIENT
  Age: 48 Year
  Sex: Male

DRUGS (6)
  1. AMPHOTERICIN B [Interacting]
     Indication: COCCIDIOIDOMYCOSIS
     Route: 042
  2. DIGOXIN [Interacting]
     Indication: COCCIDIOIDOMYCOSIS
     Route: 065
  3. HYDROXYZINE [Interacting]
     Indication: ILL-DEFINED DISORDER
     Route: 065
  4. VERAPAMIL [Interacting]
     Indication: COCCIDIOIDOMYCOSIS
     Route: 065
  5. ITRACONAZOLE [Suspect]
     Indication: COCCIDIOIDOMYCOSIS
     Route: 042
  6. WARFARIN SODIUM [Interacting]
     Indication: ILL-DEFINED DISORDER
     Route: 065

REACTIONS (4)
  - TOXICITY TO VARIOUS AGENTS [None]
  - NAUSEA [None]
  - DRUG INTERACTION [None]
  - MALAISE [None]
